FAERS Safety Report 4491892-9 (Version None)
Quarter: 2004Q4

REPORT INFORMATION
  Report Type: 
  Country: None (occurrence: None)
  Receive Date: 20041101
  Receipt Date: 20041022
  Transmission Date: 20050328
  Serious: Yes (Hospitalization)
  Sender: FDA-Public Use
  Company Number: US011120

PATIENT
  Age: 12 Year
  Sex: Male

DRUGS (10)
  1. GABITRIL [Suspect]
     Indication: AGGRESSION
     Dosage: 2 MG BID ORAL
     Route: 048
     Dates: start: 20011004, end: 20020306
  2. GABITRIL [Suspect]
     Indication: MOOD SWINGS
     Dosage: 2 MG BID ORAL
     Route: 048
     Dates: start: 20011004, end: 20020306
  3. GABITRIL [Suspect]
     Indication: AGGRESSION
     Dosage: 4 MG BID ORAL
     Route: 048
     Dates: start: 20020307, end: 20030225
  4. GABITRIL [Suspect]
     Indication: MOOD SWINGS
     Dosage: 4 MG BID ORAL
     Route: 048
     Dates: start: 20020307, end: 20030225
  5. GABITRIL [Suspect]
     Indication: AGGRESSION
     Dosage: 8 MG BID ORAL
     Route: 048
     Dates: start: 20030226, end: 20030316
  6. GABITRIL [Suspect]
     Indication: MOOD SWINGS
     Dosage: 8 MG BID ORAL
     Route: 048
     Dates: start: 20030226, end: 20030316
  7. GABITRIL [Suspect]
     Indication: AGGRESSION
     Dosage: 12 MG BID ORAL
     Route: 048
     Dates: start: 20030317, end: 20030609
  8. GABITRIL [Suspect]
     Indication: MOOD SWINGS
     Dosage: 12 MG BID ORAL
     Route: 048
     Dates: start: 20030317, end: 20030609
  9. RISPERDAL [Concomitant]
  10. CELEXA [Concomitant]

REACTIONS (1)
  - STATUS EPILEPTICUS [None]
